FAERS Safety Report 6468540-1 (Version None)
Quarter: 2009Q4

REPORT INFORMATION
  Report Type: 
  Country: None (occurrence: None)
  Receive Date: 20091203
  Receipt Date: 20091123
  Transmission Date: 20100525
  Serious: Yes (Death, Other)
  Sender: FDA-Public Use
  Company Number: GB-JNJFOC-20091107183

PATIENT
  Sex: Female
  Weight: 69 kg

DRUGS (10)
  1. REMICADE [Suspect]
     Indication: RHEUMATOID ARTHRITIS
     Dosage: DOSE: ^184^
     Route: 042
     Dates: start: 20020206, end: 20051117
  2. OTHER BIOLOGICS [Concomitant]
  3. PREDNISOLONE [Concomitant]
  4. BENDROFLUAZIDE [Concomitant]
  5. CALCIUM GLUCONATE [Concomitant]
  6. CLOTRIMAZOLE [Concomitant]
  7. CO-CODAMOL [Concomitant]
  8. FOSAMAX [Concomitant]
  9. HYDROXYCHLOROQUINE SULFATE [Concomitant]
  10. ROFECOXIB [Concomitant]

REACTIONS (2)
  - COLON CANCER [None]
  - DEATH [None]
